FAERS Safety Report 7497648-7 (Version None)
Quarter: 2011Q2

REPORT INFORMATION
  Report Type: 
  Country: None (occurrence: None)
  Receive Date: 20110523
  Receipt Date: 20110516
  Transmission Date: 20111010
  Serious: Yes (Other)
  Sender: FDA-Public Use
  Company Number: GXKR2011DE01770

PATIENT
  Sex: Male
  Weight: 75 kg

DRUGS (2)
  1. TILIDIN COMP. [Concomitant]
     Indication: PAIN
     Dosage: 1 DF, BID
     Route: 048
     Dates: start: 20110411, end: 20110421
  2. DICLO 1A PHARMA [Suspect]
     Indication: PAIN
     Dosage: 100 MG, BID
     Route: 048
     Dates: start: 20110411, end: 20110421

REACTIONS (4)
  - BLOOD GLUCOSE INCREASED [None]
  - DIABETES MELLITUS [None]
  - ALOPECIA [None]
  - HAIR COLOUR CHANGES [None]
